FAERS Safety Report 5049842-2 (Version None)
Quarter: 2006Q3

REPORT INFORMATION
  Report Type: 
  Country: None (occurrence: None)
  Receive Date: 20060706
  Receipt Date: 20060627
  Transmission Date: 20061208
  Serious: Yes (Hospitalization)
  Sender: FDA-Public Use
  Company Number: 2006069091

PATIENT
  Age: 6 Year
  Sex: Male

DRUGS (1)
  1. GENOTROPIN [Suspect]
     Indication: PRADER-WILLI SYNDROME
     Dosage: SEE IMAGE, SUBCUTANEOUS
     Route: 058
     Dates: start: 20001101

REACTIONS (3)
  - ADENOIDECTOMY [None]
  - OSTEOCHONDROMA [None]
  - TONSILLECTOMY [None]
